FAERS Safety Report 14849852 (Version 1)
Quarter: 2018Q2

REPORT INFORMATION
  Report Type: Not Available
  Country: US (occurrence: US)
  Receive Date: 20180504
  Receipt Date: 20180504
  Transmission Date: 20180711
  Serious: Yes (Other)
  Sender: FDA-Public Use
  Company Number: US-C B FLEET CO INC-201803-US-000590

PATIENT
  Sex: Female

DRUGS (3)
  1. AMOXICILLIN. [Concomitant]
     Active Substance: AMOXICILLIN
  2. CHLORASEPTIC SORE THROAT CHERRY [Suspect]
     Active Substance: PHENOL
     Indication: OROPHARYNGEAL PAIN
     Dosage: SPRAYED TWICE THIS MORNING BACK TO BACK
     Route: 048
     Dates: start: 20180319, end: 20180319
  3. RICOLA COUGH DROP [Concomitant]

REACTIONS (10)
  - Hypersensitivity [Recovered/Resolved]
  - Pharyngeal oedema [Recovered/Resolved]
  - Urticaria [Recovered/Resolved]
  - Oral mucosal blistering [Recovered/Resolved]
  - Inappropriate schedule of drug administration [None]
  - Swelling face [Recovered/Resolved]
  - Pruritus [Recovered/Resolved]
  - Lip swelling [Recovering/Resolving]
  - Hypoaesthesia oral [Recovered/Resolved]
  - Eye swelling [Recovered/Resolved]

NARRATIVE: CASE EVENT DATE: 20180319
